FAERS Safety Report 23869730 (Version 2)
Quarter: 2024Q2

REPORT INFORMATION
  Report Type: Report from Study
  Country: US (occurrence: US)
  Receive Date: 20240517
  Receipt Date: 20240522
  Transmission Date: 20240716
  Serious: Yes (Hospitalization)
  Sender: FDA-Public Use
  Company Number: US-ABBVIE-5761984

PATIENT
  Sex: Female

DRUGS (1)
  1. SKYRIZI [Suspect]
     Active Substance: RISANKIZUMAB-RZAA
     Indication: Psoriasis
     Route: 058
     Dates: start: 20230525

REACTIONS (5)
  - Influenza like illness [Unknown]
  - COVID-19 [Not Recovered/Not Resolved]
  - Liver function test increased [Not Recovered/Not Resolved]
  - Nasopharyngitis [Unknown]
  - Illness [Not Recovered/Not Resolved]

NARRATIVE: CASE EVENT DATE: 20240101
